FAERS Safety Report 20618775 (Version 1)
Quarter: 2022Q1

REPORT INFORMATION
  Report Type: Report from Study
  Country: US (occurrence: US)
  Receive Date: 20220322
  Receipt Date: 20220322
  Transmission Date: 20220423
  Serious: No
  Sender: FDA-Public Use
  Company Number: US-BIOVITRUM-2022US02147

PATIENT
  Sex: Male

DRUGS (6)
  1. SYNAGIS [Suspect]
     Active Substance: PALIVIZUMAB
     Indication: Antiviral prophylaxis
     Dosage: 100MG/1ML
     Route: 030
  2. MOMETASONE FUROATE [Concomitant]
     Active Substance: MOMETASONE FUROATE
  3. NEXIUM [Concomitant]
     Active Substance: ESOMEPRAZOLE MAGNESIUM
  4. BUDESONIDE [Concomitant]
     Active Substance: BUDESONIDE
  5. ALBUTEROL [Concomitant]
     Active Substance: ALBUTEROL
  6. KEFLEX [Concomitant]
     Active Substance: CEPHALEXIN

REACTIONS (2)
  - COVID-19 [Unknown]
  - Injection site rash [Unknown]
